FAERS Safety Report 4411722-0 (Version None)
Quarter: 2004Q3

REPORT INFORMATION
  Report Type: 
  Country: None (occurrence: None)
  Receive Date: 20040728
  Receipt Date: 20040726
  Transmission Date: 20050211
  Serious: Yes (Death)
  Sender: FDA-Public Use
  Company Number: BET-504-AE

PATIENT
  Sex: Female

DRUGS (1)
  1. BETIMOL [Suspect]
     Dosage: TOPICAL
     Route: 061

REACTIONS (1)
  - DEATH [None]
